FAERS Safety Report 19480514 (Version 1)
Quarter: 2021Q2

REPORT INFORMATION
  Report Type: Spontaneous
  Country: US (occurrence: US)
  Receive Date: 20210630
  Receipt Date: 20210630
  Transmission Date: 20210717
  Serious: Yes (Other)
  Sender: FDA-Public Use
  Company Number: US-FOUNDATIONCONSUMERHC-2021-US-006197

PATIENT
  Age: 34 Year
  Sex: Female
  Weight: 90.72 kg

DRUGS (1)
  1. PLAN B ONE?STEP [Suspect]
     Active Substance: LEVONORGESTREL
     Indication: POST COITAL CONTRACEPTION
     Dosage: 1.5MG
     Route: 048
     Dates: start: 20210220, end: 20210220

REACTIONS (4)
  - Abdominal pain [Not Recovered/Not Resolved]
  - Drug ineffective [Unknown]
  - Vaginal haemorrhage [Not Recovered/Not Resolved]
  - Ectopic pregnancy [Unknown]

NARRATIVE: CASE EVENT DATE: 20210220
